FAERS Safety Report 6737657-6 (Version None)
Quarter: 2010Q2

REPORT INFORMATION
  Report Type: 
  Country: None (occurrence: None)
  Receive Date: 20100521
  Receipt Date: 20100521
  Transmission Date: 20101027
  Serious: Yes (Hospitalization)
  Sender: FDA-Public Use
  Company Number: None

PATIENT
  Age: 20 Year
  Sex: Female
  Weight: 53.5244 kg

DRUGS (1)
  1. LOW-OGESTREL-21 [Suspect]
     Indication: CONTRACEPTION
     Dosage: 1 DAILY PO
     Route: 048
     Dates: start: 20100414, end: 20100514

REACTIONS (2)
  - BLOOD VISCOSITY INCREASED [None]
  - DEEP VEIN THROMBOSIS [None]
